FAERS Safety Report 25670344 (Version 2)
Quarter: 2025Q3

REPORT INFORMATION
  Report Type: Spontaneous
  Country: US (occurrence: US)
  Receive Date: 20250812
  Receipt Date: 20250813
  Transmission Date: 20251020
  Serious: Yes (Other)
  Sender: PFIZER
  Company Number: US-PFIZER INC-202500159861

PATIENT
  Age: 73 Year
  Sex: Male

DRUGS (1)
  1. DOFETILIDE [Suspect]
     Active Substance: DOFETILIDE
     Dosage: 500 UG, 2X/DAY/2 500MCG CAPSULE PER DAY

REACTIONS (3)
  - Neuropathy peripheral [Unknown]
  - Peroneal nerve palsy [Unknown]
  - Muscular weakness [Unknown]
